FAERS Safety Report 4369989-3 (Version None)
Quarter: 2004Q2

REPORT INFORMATION
  Report Type: 
  Country: None (occurrence: None)
  Receive Date: 20040603
  Receipt Date: 20040527
  Transmission Date: 20050107
  Serious: Yes (Other)
  Sender: FDA-Public Use
  Company Number: US-GLAXOSMITHKLINE-A0512391A

PATIENT
  Age: 58 Year
  Sex: Female

DRUGS (6)
  1. LAMICTAL [Suspect]
     Indication: BIPOLAR DISORDER
     Dosage: 50MG PER DAY
     Route: 048
  2. KLONOPIN [Concomitant]
  3. BACTRIM [Concomitant]
  4. ESTRADIOL [Concomitant]
  5. PREVACID [Concomitant]
  6. TYLENOL [Concomitant]

REACTIONS (4)
  - MANIA [None]
  - MUSCLE TIGHTNESS [None]
  - SOMNOLENCE [None]
  - TINNITUS [None]
